FAERS Safety Report 6321355-7 (Version None)
Quarter: 2009Q3

REPORT INFORMATION
  Report Type: 
  Country: None (occurrence: None)
  Receive Date: 20090822
  Receipt Date: 20090114
  Transmission Date: 20100115
  Serious: No
  Sender: FDA-Public Use
  Company Number: US-ABBOTT-09P-163-0498174-00

PATIENT
  Sex: Male

DRUGS (8)
  1. NIASPAN [Suspect]
     Indication: DRUG USE FOR UNKNOWN INDICATION
     Dosage: 500 MG TO 1000 MG THREE DAYS AGO
  2. CRESTOR [Concomitant]
     Indication: DRUG USE FOR UNKNOWN INDICATION
  3. PLAVIX [Concomitant]
     Indication: DRUG USE FOR UNKNOWN INDICATION
  4. PHOSAMAX [Concomitant]
     Indication: DRUG USE FOR UNKNOWN INDICATION
  5. M.V.I. [Concomitant]
     Indication: DRUG USE FOR UNKNOWN INDICATION
  6. ASTMANEX [Concomitant]
     Indication: DRUG USE FOR UNKNOWN INDICATION
  7. FISH OIL [Concomitant]
     Indication: DRUG USE FOR UNKNOWN INDICATION
  8. COQ10 [Concomitant]
     Indication: DRUG USE FOR UNKNOWN INDICATION

REACTIONS (1)
  - FLUSHING [None]
